FAERS Safety Report 6565382-3 (Version None)
Quarter: 2010Q1

REPORT INFORMATION
  Report Type: 
  Country: None (occurrence: None)
  Receive Date: 20100201
  Receipt Date: 20100120
  Transmission Date: 20100710
  Serious: No
  Sender: FDA-Public Use
  Company Number: US-B.I. PHARMACEUTICALS,INC./RIDGEFIELD-2010-BP-00818BP

PATIENT
  Sex: Female

DRUGS (8)
  1. SPIRIVA [Suspect]
     Indication: ASTHMA
     Dosage: 18 MCG
     Route: 055
     Dates: start: 20060101
  2. SEREVENT [Concomitant]
     Indication: ASTHMA
  3. VENTOLIN [Concomitant]
     Indication: ASTHMA
  4. SYNTHROID [Concomitant]
     Indication: HYPOTHYROIDISM
  5. DIAMOX SRC [Concomitant]
     Indication: HEADACHE
  6. LAMICTAL [Concomitant]
     Indication: HEADACHE
  7. LAMICTAL [Concomitant]
     Indication: CONVULSION
  8. VERAPAMIL [Concomitant]
     Indication: HEADACHE

REACTIONS (3)
  - DYSPNOEA [None]
  - HEADACHE [None]
  - PAIN [None]
